FAERS Safety Report 14962431 (Version 1)
Quarter: 2018Q2

REPORT INFORMATION
  Report Type: Spontaneous
  Country: US (occurrence: US)
  Receive Date: 20180510
  Receipt Date: 20180510
  Transmission Date: 20180711
  Serious: Yes (Hospitalization)
  Sender: FDA-Public Use
  Company Number: None

PATIENT
  Age: 30 Year
  Sex: Male
  Weight: 121.2 kg

DRUGS (3)
  1. IFOSFAMIDE. [Suspect]
     Active Substance: IFOSFAMIDE
     Dates: end: 20180427
  2. CISPLATIN. [Suspect]
     Active Substance: CISPLATIN
     Dates: end: 20180427
  3. TAXOL [Suspect]
     Active Substance: PACLITAXEL
     Dates: end: 20180423

REACTIONS (3)
  - Hypotension [None]
  - Pyrexia [None]
  - Neutropenia [None]

NARRATIVE: CASE EVENT DATE: 20180504
